FAERS Safety Report 8583514-2 (Version None)
Quarter: 2012Q3

REPORT INFORMATION
  Report Type: 
  Country: None (occurrence: None)
  Receive Date: 20120809
  Receipt Date: 20120801
  Transmission Date: 20120928
  Serious: No
  Sender: FDA-Public Use
  Company Number: US-TEVA-349875USA

PATIENT
  Sex: Female
  Weight: 65.83 kg

DRUGS (6)
  1. PROAIR HFA [Suspect]
     Indication: ASTHMA
     Dosage: 720 MCG DAILY
     Dates: start: 20110101
  2. FLOVENT [Concomitant]
     Indication: CHRONIC OBSTRUCTIVE PULMONARY DISEASE
  3. PROAIR HFA [Suspect]
     Indication: CHRONIC OBSTRUCTIVE PULMONARY DISEASE
  4. FLOVENT [Concomitant]
     Indication: ASTHMA
     Dosage: 2 PUFFS TWICE DAILY
  5. ATROVENT [Concomitant]
     Indication: ASTHMA
     Dosage: 2 PUFFS TWICE DAILY
  6. ATROVENT [Concomitant]
     Indication: CHRONIC OBSTRUCTIVE PULMONARY DISEASE

REACTIONS (1)
  - VISION BLURRED [None]
